FAERS Safety Report 6477828-X (Version None)
Quarter: 2009Q4

REPORT INFORMATION
  Report Type: 
  Country: None (occurrence: None)
  Receive Date: 20091207
  Receipt Date: 20091126
  Transmission Date: 20100525
  Serious: Yes (Hospitalization, Other)
  Sender: FDA-Public Use
  Company Number: JP-JNJFOC-20090802380

PATIENT
  Sex: Female
  Weight: 45 kg

DRUGS (5)
  1. CRAVIT [Suspect]
     Indication: PHARYNGITIS
     Route: 048
     Dates: start: 20090723, end: 20090723
  2. EBASTINE [Suspect]
     Indication: ACUTE SINUSITIS
     Route: 048
     Dates: start: 20090723, end: 20090723
  3. ANTOBRON [Suspect]
     Indication: PHARYNGITIS
     Route: 048
     Dates: start: 20090723, end: 20090723
  4. MUCOSTA [Suspect]
     Indication: GASTRITIS PROPHYLAXIS
     Route: 048
     Dates: start: 20090723, end: 20090723
  5. MEFENAMIC ACID [Suspect]
     Indication: PHARYNGITIS
     Route: 048
     Dates: start: 20090723, end: 20090723

REACTIONS (4)
  - ABDOMINAL DISCOMFORT [None]
  - DYSPNOEA [None]
  - PERIPHERAL COLDNESS [None]
  - SOMNOLENCE [None]
